FAERS Safety Report 18561260 (Version 1)
Quarter: 2020Q4

REPORT INFORMATION
  Report Type: Spontaneous
  Country: BG (occurrence: BG)
  Receive Date: 20201130
  Receipt Date: 20201130
  Transmission Date: 20210114
  Serious: Yes (Life-Threatening, Hospitalization, Disabling, Other)
  Sender: FDA-Public Use
  Company Number: NVSC2020BG314191

PATIENT
  Age: 75 Year
  Sex: Female

DRUGS (3)
  1. OLMESARTAN [Suspect]
     Active Substance: OLMESARTAN
     Indication: HYPERTENSION
     Dosage: 10 MG, QD (ONCE DAILY)
     Route: 065
     Dates: start: 20150101, end: 20170101
  2. DIPERAM [AMLODIPINE\VALSARTAN] [Suspect]
     Active Substance: AMLODIPINE\VALSARTAN
     Indication: HYPERTENSION
     Dosage: UNK (BID (5 MG/160 MG)
     Route: 065
     Dates: start: 20181001, end: 2019
  3. VALTENSIN [Suspect]
     Active Substance: VALSARTAN
     Indication: HYPERTENSION
     Dosage: 320 MG, QD (ONCE DAILY)
     Route: 065
     Dates: start: 20170701, end: 20180901

REACTIONS (2)
  - Neoplasm malignant [Recovering/Resolving]
  - Malignant melanoma [Recovering/Resolving]
